FAERS Safety Report 9196302 (Version 2)
Quarter: 2013Q2

REPORT INFORMATION
  Report Type: Not Available
  Country: FR (occurrence: FR)
  Receive Date: 20130328
  Receipt Date: 20130607
  Transmission Date: 20140414
  Serious: Yes (Other)
  Sender: FDA-Public Use
  Company Number: FR-ASTELLAS-2013EU002862

PATIENT
  Sex: Female

DRUGS (5)
  1. PROGRAF [Suspect]
     Dosage: 2 MG, UNKNOWN/D
     Route: 065
     Dates: start: 2006
  2. IMUREL /00001501/ [Suspect]
     Dosage: UNK
     Route: 048
     Dates: start: 201102
  3. CORTANCYL [Suspect]
     Dosage: 5 MG, UNKNOWN/D
     Route: 065
     Dates: start: 2006
  4. CELLCEPT /01275102/ [Suspect]
     Dosage: UNK
     Route: 065
     Dates: start: 2006
  5. CERTICAN [Concomitant]
     Dosage: 6 MG, UNKNOWN/D
     Route: 065
     Dates: start: 2009

REACTIONS (2)
  - Squamous cell carcinoma [Not Recovered/Not Resolved]
  - Actinic keratosis [Not Recovered/Not Resolved]
